FAERS Safety Report 22070589 (Version 2)
Quarter: 2023Q2

REPORT INFORMATION
  Report Type: Spontaneous
  Country: US (occurrence: US)
  Receive Date: 20230307
  Receipt Date: 20230410
  Transmission Date: 20230721
  Serious: No
  Sender: FDA-Public Use
  Company Number: US-PFIZER INC-202300085590

PATIENT
  Age: 84 Year
  Sex: Female
  Weight: 85.73 kg

DRUGS (1)
  1. PREMARIN [Suspect]
     Active Substance: ESTROGENS, CONJUGATED
     Indication: Urinary tract disorder
     Dosage: 1 G, 2X/WEEK
     Route: 067
     Dates: start: 20230130

REACTIONS (3)
  - Body height decreased [Unknown]
  - Incorrect dose administered by device [Unknown]
  - Off label use [Unknown]

NARRATIVE: CASE EVENT DATE: 20230101
